FAERS Safety Report 20690380 (Version 7)
Quarter: 2022Q4

REPORT INFORMATION
  Report Type: Report from Study
  Country: US (occurrence: US)
  Receive Date: 20220408
  Receipt Date: 20221219
  Transmission Date: 20230112
  Serious: Yes (Hospitalization, Other)
  Sender: FDA-Public Use
  Company Number: US-TAKEDA-2022TUS021827

PATIENT
  Age: 70 Year
  Sex: Female

DRUGS (2)
  1. HUMAN IMMUNOGLOBULIN G [Suspect]
     Active Substance: HUMAN IMMUNOGLOBULIN G
     Indication: Selective IgG subclass deficiency
     Dosage: 15 GRAM
     Route: 065
  2. HUMAN IMMUNOGLOBULIN G [Suspect]
     Active Substance: HUMAN IMMUNOGLOBULIN G
     Indication: Primary immunodeficiency syndrome

REACTIONS (26)
  - Haematochezia [Unknown]
  - Haemorrhage [Unknown]
  - Clostridium difficile infection [Unknown]
  - Escherichia infection [Unknown]
  - Sinusitis [Unknown]
  - Ear infection [Unknown]
  - COVID-19 [Recovering/Resolving]
  - Pain [Unknown]
  - Ankle fracture [Unknown]
  - Colitis ulcerative [Unknown]
  - Colitis [Unknown]
  - Central venous catheterisation [Unknown]
  - Fall [Unknown]
  - Osteoporosis [Unknown]
  - Feeling abnormal [Unknown]
  - Gastrointestinal pain [Unknown]
  - Illness [Unknown]
  - Abdominal pain upper [Unknown]
  - Back pain [Unknown]
  - Nausea [Unknown]
  - Asthenia [Unknown]
  - Spinal pain [Recovering/Resolving]
  - Spinal disorder [Recovering/Resolving]
  - Injection site discharge [Unknown]
  - Peripheral swelling [Unknown]
  - Gastrointestinal disorder [Unknown]

NARRATIVE: CASE EVENT DATE: 20220410
